FAERS Safety Report 9861723 (Version 1)
Quarter: 2014Q1

REPORT INFORMATION
  Report Type: Spontaneous
  Country: US (occurrence: None)
  Receive Date: 20140131
  Receipt Date: 20140131
  Transmission Date: 20141002
  Serious: No
  Sender: FDA-Public Use
  Company Number: None

PATIENT
  Age: 62 Year
  Sex: Male
  Weight: 91 kg

DRUGS (11)
  1. CLEVIDIPINE [Suspect]
     Indication: HYPERTENSION
     Dosage: 1MG HOUR INTRAVENOUS
     Route: 042
     Dates: start: 20140107, end: 20140109
  2. LEVETIRACETAM [Concomitant]
  3. FAMOTIDINE [Concomitant]
  4. DEXMETOMIDINE [Concomitant]
  5. DEXAMETASONE (DEXAMETASONE) [Concomitant]
  6. HEPARIN [Concomitant]
  7. VANCIMYCIN [Concomitant]
  8. ATORVASTATIN [Concomitant]
  9. HCTZ [Concomitant]
  10. METOPROLOL [Concomitant]
  11. THIAMINE [Concomitant]

REACTIONS (2)
  - Chest pain [None]
  - Atrial fibrillation [None]
